FAERS Safety Report 7754588-3 (Version None)
Quarter: 2011Q3

REPORT INFORMATION
  Report Type: 
  Country: None (occurrence: None)
  Receive Date: 20110915
  Receipt Date: 20110906
  Transmission Date: 20111222
  Serious: Yes (Other)
  Sender: FDA-Public Use
  Company Number: GR-MILLENNIUM PHARMACEUTICALS, INC.-2011-04097

PATIENT

DRUGS (1)
  1. VELCADE [Suspect]
     Indication: TRANSPLANT REJECTION

REACTIONS (2)
  - RENAL TUBULAR ATROPHY [None]
  - KIDNEY FIBROSIS [None]
